FAERS Safety Report 8838909 (Version 1)
Quarter: 2012Q4

REPORT INFORMATION
  Report Type: 
  Country: DE (occurrence: DE)
  Receive Date: 20121015
  Receipt Date: 20121015
  Transmission Date: 20130627
  Serious: Yes (Hospitalization)
  Sender: FDA-Public Use
  Company Number: DE-AMGEN-DEUSP2012064584

PATIENT
  Sex: Male

DRUGS (7)
  1. NEULASTA [Suspect]
     Indication: B-CELL LYMPHOMA
     Dosage: 6 mg, qd
     Route: 058
     Dates: start: 20120908, end: 20120909
  2. RITUXIMAB [Suspect]
     Indication: B-CELL LYMPHOMA
     Dosage: 716.25 mg, qd
     Route: 042
     Dates: start: 20120904
  3. CYCLOPHOSPHAMIDE [Suspect]
     Indication: B-CELL LYMPHOMA
     Dosage: 1074.38 mg, qd
     Route: 042
     Dates: start: 20120905
  4. DOXORUBICINE                       /00330901/ [Suspect]
     Indication: B-CELL LYMPHOMA
     Dosage: 71.63 mg, qd
     Route: 042
     Dates: start: 20120905
  5. VINCRISTINE [Suspect]
     Indication: B-CELL LYMPHOMA
     Dosage: 3.82 mg/m2, qd
     Route: 042
     Dates: start: 20120905
  6. PREDNISONE [Suspect]
     Indication: B-CELL LYMPHOMA
     Dosage: 100 mg, qd
     Route: 048
     Dates: start: 20120905, end: 20120909
  7. ALLOPURINOL [Concomitant]
     Indication: TUMOUR LYSIS SYNDROME
     Dosage: UNK
     Dates: start: 2012

REACTIONS (2)
  - Pyrexia [Recovered/Resolved]
  - Abdominal pain [Recovered/Resolved]
